FAERS Safety Report 7772095-9 (Version None)
Quarter: 2011Q3

REPORT INFORMATION
  Report Type: 
  Country: None (occurrence: None)
  Receive Date: 20110922
  Receipt Date: 20100730
  Transmission Date: 20111222
  Serious: No
  Sender: FDA-Public Use
  Company Number: US-ASTRAZENECA-2010SE35784

PATIENT
  Age: 28 Year
  Sex: Female
  Weight: 61.2 kg

DRUGS (9)
  1. SEROQUEL [Suspect]
     Route: 048
  2. SEROQUEL [Suspect]
     Indication: MAJOR DEPRESSION
     Route: 048
  3. SEROQUEL [Suspect]
     Route: 048
  4. LEXAPRO [Concomitant]
  5. SEROQUEL [Suspect]
     Indication: POST-TRAUMATIC STRESS DISORDER
     Route: 048
  6. SEROQUEL [Suspect]
     Route: 048
  7. ATIVAN [Concomitant]
  8. PROPRANOLOL [Concomitant]
  9. SEROQUEL [Suspect]
     Indication: PANIC DISORDER
     Route: 048

REACTIONS (5)
  - WITHDRAWAL SYNDROME [None]
  - DRUG DOSE OMISSION [None]
  - FATIGUE [None]
  - DYSKINESIA [None]
  - MUSCLE TWITCHING [None]
